FAERS Safety Report 9688345 (Version 1)
Quarter: 2013Q4

REPORT INFORMATION
  Report Type: Spontaneous
  Country: US (occurrence: None)
  Receive Date: 20131112
  Receipt Date: 20131112
  Transmission Date: 20140711
  Serious: Yes (Death)
  Sender: FDA-Public Use
  Company Number: 2013US002805

PATIENT
  Age: 84 Year
  Sex: Male

DRUGS (1)
  1. ICLUSIG (PONATINIB) [Suspect]
     Route: 048

REACTIONS (2)
  - Thrombocytopenia [None]
  - Abdominal distension [None]
